FAERS Safety Report 25191810 (Version 1)
Quarter: 2025Q2

REPORT INFORMATION
  Report Type: Spontaneous
  Country: GB (occurrence: GB)
  Receive Date: 20250414
  Receipt Date: 20250414
  Transmission Date: 20250716
  Serious: Yes (Hospitalization)
  Sender: MYLAN
  Company Number: GB-MYLANLABS-2025M1026712

PATIENT
  Age: 54 Year
  Sex: Male

DRUGS (15)
  1. CLOZARIL [Suspect]
     Active Substance: CLOZAPINE
     Indication: Schizophrenia
     Dates: start: 20250224, end: 20250321
  2. DIAZEPAM [Concomitant]
     Active Substance: DIAZEPAM
     Indication: Anxiety
     Dosage: 5 MILLIGRAM, BID
  3. OLANZAPINE [Concomitant]
     Active Substance: OLANZAPINE
     Indication: Schizophrenia
  4. OLANZAPINE [Concomitant]
     Active Substance: OLANZAPINE
     Dosage: UNK, BID (5MG MANE, 15 MG NOCTE)
     Dates: end: 20250310
  5. SIMVASTATIN [Concomitant]
     Active Substance: SIMVASTATIN
     Indication: Blood cholesterol abnormal
     Dosage: 40 MILLIGRAM, PM (NOCTE)
  6. ACETAMINOPHEN [Concomitant]
     Active Substance: ACETAMINOPHEN
     Indication: Pain
     Dosage: 1 GRAM, QID (QDS)
  7. PROPRANOLOL [Concomitant]
     Active Substance: PROPRANOLOL HYDROCHLORIDE
     Indication: Anxiety
     Dosage: 10 MILLIGRAM, BID
  8. PREGABALIN [Concomitant]
     Active Substance: PREGABALIN
     Indication: Anxiety
     Dosage: 300 MILLIGRAM, BID
  9. VENLAFAXINE [Concomitant]
     Active Substance: VENLAFAXINE HYDROCHLORIDE
     Indication: Affective disorder
     Dosage: 150 MILLIGRAM, QD (ONCE DAILY)
  10. MIRTAZAPINE [Concomitant]
     Active Substance: MIRTAZAPINE
     Indication: Affective disorder
     Dosage: 45 MILLIGRAM, PM (NOCTE)
  11. INSULIN ASPART [Concomitant]
     Active Substance: INSULIN ASPART
     Indication: Type 2 diabetes mellitus
     Dosage: UNK, BID (20U, 24U AT 8AM AND 6PM)
  12. LISINOPRIL [Concomitant]
     Active Substance: LISINOPRIL
     Indication: Blood pressure abnormal
     Dosage: 10 MILLIGRAM, QD (ONCE DAILY)
  13. METFORMIN [Concomitant]
     Active Substance: METFORMIN HYDROCHLORIDE
     Indication: Type 2 diabetes mellitus
     Dosage: 1 GRAM, BID
  14. SENNA [Concomitant]
     Active Substance: SENNOSIDES
     Indication: Constipation
     Dosage: 15 MILLIGRAM, PM (PRN)
  15. POLYETHYLENE GLYCOLS [Concomitant]
     Active Substance: POLYETHYLENE GLYCOLS
     Dosage: 2 DOSAGE FORM, BID (PRN)

REACTIONS (7)
  - Diabetes mellitus inadequate control [Unknown]
  - Fall [Unknown]
  - Lower respiratory tract infection [Unknown]
  - Ankle fracture [Unknown]
  - Hypotension [Unknown]
  - Influenza [Unknown]
  - Dizziness [Unknown]

NARRATIVE: CASE EVENT DATE: 20250301
